FAERS Safety Report 5651836-0 (Version None)
Quarter: 2008Q1

REPORT INFORMATION
  Report Type: 
  Country: None (occurrence: None)
  Receive Date: 20080304
  Receipt Date: 20080219
  Transmission Date: 20080703
  Serious: Yes (Hospitalization)
  Sender: FDA-Public Use
  Company Number: 2008BI001365

PATIENT
  Age: 61 Year
  Sex: Female

DRUGS (26)
  1. TYSABRI [Suspect]
     Indication: MULTIPLE SCLEROSIS
     Dosage: 300 MG;QM;IV
     Route: 042
     Dates: start: 20061012
  2. METHADONE [Concomitant]
  3. MOBIC [Concomitant]
  4. METFORMIN [Concomitant]
  5. ASPIRIN [Concomitant]
  6. NITROSTAT [Concomitant]
  7. KEPPRA [Concomitant]
  8. CLARITIN [Concomitant]
  9. SINGULAIR [Concomitant]
  10. CORGARD [Concomitant]
  11. LASIX [Concomitant]
  12. OMEPRAZOLE [Concomitant]
  13. DITROPAN [Concomitant]
  14. KLOR-CON [Concomitant]
  15. PHENERGAN HCL [Concomitant]
  16. TYLENOL (CAPLET) [Concomitant]
  17. REQUIP [Concomitant]
  18. VYTORIN [Concomitant]
  19. SYNTHROID [Concomitant]
  20. ACTONEL [Concomitant]
  21. KLONOPIN [Concomitant]
  22. ALBUTEROL [Concomitant]
  23. BACLOFEN [Concomitant]
  24. HUMULIN R [Concomitant]
  25. LEXAPRO [Concomitant]
  26. LYRICA [Concomitant]

REACTIONS (3)
  - CONFUSIONAL STATE [None]
  - DELIRIUM [None]
  - DEVICE OCCLUSION [None]
